FAERS Safety Report 9030987 (Version 1)
Quarter: 2013Q1

REPORT INFORMATION
  Report Type: Report from Study
  Country: RU (occurrence: RU)
  Receive Date: 20130123
  Receipt Date: 20130123
  Transmission Date: 20140127
  Serious: Yes (Death)
  Sender: FDA-Public Use
  Company Number: RU-ROCHE-1182666

PATIENT
  Sex: 0

DRUGS (3)
  1. RITUXIMAB [Suspect]
     Indication: MANTLE CELL LYMPHOMA
     Dosage: 375 MG/M SUP 2 DAY 0
     Route: 065
  2. METHOTREXATE [Suspect]
     Indication: MANTLE CELL LYMPHOMA
     Dosage: 1000 MG/M SUP 2 24 HOURS CI DAY 1
     Route: 065
  3. CYTARABINE [Suspect]
     Indication: MANTLE CELL LYMPHOMA
     Dosage: 3000 MG/M SUP 2 Q 12 HRS DAYS 2-3
     Route: 065

REACTIONS (2)
  - Renal failure acute [Fatal]
  - Septic shock [Fatal]
